FAERS Safety Report 8280161-7 (Version None)
Quarter: 2012Q2

REPORT INFORMATION
  Report Type: 
  Country: None (occurrence: None)
  Receive Date: 20120412
  Receipt Date: 20120403
  Transmission Date: 20120825
  Serious: Yes (Hospitalization)
  Sender: FDA-Public Use
  Company Number: IT-MERCK-1204USA00581

PATIENT
  Age: 72 Year
  Sex: Male

DRUGS (8)
  1. FOSAMAX PLUS D [Suspect]
     Route: 048
  2. INFLIXIMAB [Suspect]
     Indication: RHEUMATOID ARTHRITIS
     Route: 041
     Dates: start: 20100623, end: 20120111
  3. ATORVASTATIN [Concomitant]
     Route: 065
  4. ASPIRIN [Concomitant]
     Route: 065
  5. PREDNISONE TAB [Concomitant]
     Route: 065
  6. ARAVA [Concomitant]
     Route: 065
  7. CARVEDILOL [Concomitant]
     Route: 065
  8. MICARDIS [Concomitant]
     Route: 065

REACTIONS (1)
  - RESPIRATORY FAILURE [None]
